FAERS Safety Report 6213341-2 (Version None)
Quarter: 2009Q2

REPORT INFORMATION
  Report Type: 
  Country: None (occurrence: None)
  Receive Date: 20090601
  Receipt Date: 20090601
  Transmission Date: 20091009
  Serious: Yes (Life-Threatening)
  Sender: FDA-Public Use
  Company Number: None

PATIENT
  Age: 68 Year
  Sex: Female
  Weight: 104.1 kg

DRUGS (1)
  1. DILAUDID [Suspect]
     Indication: PROCEDURAL PAIN
     Dosage: DILAUDID 2MG Q4H PRN IV
     Route: 042

REACTIONS (1)
  - RESPIRATORY RATE DECREASED [None]
